FAERS Safety Report 6577349-X (Version None)
Quarter: 2010Q1

REPORT INFORMATION
  Report Type: 
  Country: None (occurrence: None)
  Receive Date: 20100211
  Receipt Date: 20100203
  Transmission Date: 20100710
  Serious: Yes (Hospitalization)
  Sender: FDA-Public Use
  Company Number: US-BIOGENIDEC-2009BI018882

PATIENT
  Age: 43 Year
  Sex: Female
  Weight: 72 kg

DRUGS (3)
  1. TYSABRI [Suspect]
     Indication: MULTIPLE SCLEROSIS
     Route: 042
     Dates: start: 20080213, end: 20090513
  2. TYSABRI [Suspect]
     Route: 042
     Dates: start: 20090930
  3. BIRTH CONTROL PILLS NOS [Concomitant]
     Indication: OVARIAN CYST
     Dates: start: 20000101

REACTIONS (30)
  - ALOPECIA [None]
  - AMNESIA [None]
  - APHONIA [None]
  - ARTHRALGIA [None]
  - BALANCE DISORDER [None]
  - BLINDNESS [None]
  - CONVULSION [None]
  - DEPRESSION [None]
  - DIZZINESS [None]
  - EUPHORIC MOOD [None]
  - FATIGUE [None]
  - HYPERSENSITIVITY [None]
  - INCREASED TENDENCY TO BRUISE [None]
  - INFLUENZA LIKE ILLNESS [None]
  - INSOMNIA [None]
  - LOSS OF CONSCIOUSNESS [None]
  - MEMORY IMPAIRMENT [None]
  - MENSTRUATION IRREGULAR [None]
  - MUSCLE SPASMS [None]
  - NAUSEA [None]
  - OROPHARYNGEAL PAIN [None]
  - OVARIAN CYST [None]
  - PARAESTHESIA [None]
  - PLANTAR FASCIITIS [None]
  - PROCEDURAL PAIN [None]
  - SOMNAMBULISM [None]
  - SWELLING FACE [None]
  - URINARY INCONTINENCE [None]
  - VITAMIN B12 DECREASED [None]
  - WEIGHT INCREASED [None]
